FAERS Safety Report 9418080 (Version 1)
Quarter: 2013Q3

REPORT INFORMATION
  Report Type: Spontaneous
  Country: US (occurrence: US)
  Receive Date: 20130724
  Receipt Date: 20130724
  Transmission Date: 20140515
  Serious: Yes (Hospitalization)
  Sender: FDA-Public Use
  Company Number: US-FRI-1000045749

PATIENT
  Sex: Female

DRUGS (9)
  1. CELEXA [Suspect]
     Indication: DEPRESSION
     Dosage: 40 MG
     Route: 048
     Dates: start: 20100223
  2. LYRICA [Concomitant]
     Indication: FIBROMYALGIA
     Dosage: 300 MG
     Route: 048
     Dates: start: 2010, end: 2010
  3. LYRICA [Concomitant]
     Dosage: 300 MG
     Route: 048
     Dates: start: 201305
  4. DIAZEPAM [Concomitant]
     Indication: ANXIETY
     Dosage: 10 MG
     Route: 048
     Dates: start: 201004
  5. DIAZEPAM [Concomitant]
     Indication: MUSCLE SPASMS
  6. PERCOCET [Concomitant]
     Indication: PAIN
     Dosage: 10/325 MG
     Dates: start: 20120119
  7. PERCOCET [Concomitant]
     Indication: INTERVERTEBRAL DISC PROTRUSION
  8. ALEVE [Concomitant]
  9. MULTI-VITAMIN [Concomitant]

REACTIONS (6)
  - Stress [Unknown]
  - Pain [Unknown]
  - Depression [Unknown]
  - Depressed mood [Unknown]
  - Apathy [Unknown]
  - Pain [Unknown]
